FAERS Safety Report 5089876-5 (Version None)
Quarter: 2006Q3

REPORT INFORMATION
  Report Type: 
  Country: None (occurrence: None)
  Receive Date: 20060727
  Receipt Date: 20060518
  Transmission Date: 20061208
  Serious: Yes (Other)
  Sender: FDA-Public Use
  Company Number: 2006066461

PATIENT
  Age: 58 Year
  Sex: Female
  Weight: 68.0396 kg

DRUGS (4)
  1. LYRICA [Suspect]
     Indication: NEURALGIA
     Dosage: 50 MG (25 MG,2 IN 1 D)
     Dates: start: 20060426
  2. ATIVAN [Concomitant]
  3. CELEXA [Concomitant]
  4. ZYRTEC [Concomitant]

REACTIONS (2)
  - PAIN [None]
  - PAIN IN EXTREMITY [None]
